FAERS Safety Report 24426879 (Version 2)
Quarter: 2024Q4

REPORT INFORMATION
  Report Type: Spontaneous
  Country: BD (occurrence: BD)
  Receive Date: 20241011
  Receipt Date: 20241017
  Transmission Date: 20250115
  Serious: Yes (Death, Hospitalization)
  Sender: SANDOZ
  Company Number: BD-SANDOZ-SDZ2024BD086439

PATIENT
  Age: 68 Year
  Sex: Female
  Weight: 65 kg

DRUGS (1)
  1. ACLASTA [Suspect]
     Active Substance: ZOLEDRONIC ACID
     Indication: Osteoporosis
     Dosage: 1 DF, Q12MO
     Route: 042
     Dates: start: 2017, end: 2022

REACTIONS (1)
  - Accident [Fatal]

NARRATIVE: CASE EVENT DATE: 20230502
